FAERS Safety Report 24060567 (Version 2)
Quarter: 2024Q3

REPORT INFORMATION
  Report Type: Spontaneous
  Country: US (occurrence: US)
  Receive Date: 20240708
  Receipt Date: 20240910
  Transmission Date: 20241017
  Serious: No
  Sender: BIOVITRUM
  Company Number: US-BIOVITRUM-2024-US-009541

PATIENT
  Age: 69 Year
  Sex: Male

DRUGS (3)
  1. VONJO [Suspect]
     Active Substance: PACRITINIB
     Indication: Myeloproliferative neoplasm
     Dosage: TWICE DAILY (BID)
     Route: 048
     Dates: start: 20240530
  2. VONJO [Suspect]
     Active Substance: PACRITINIB
     Dosage: ONE PILL DAILY/ONE PER DAY
     Route: 048
  3. VONJO [Suspect]
     Active Substance: PACRITINIB
     Dosage: 200 MG, TWICE A DAY
     Route: 048
     Dates: start: 20240530

REACTIONS (4)
  - Off label use [Recovered/Resolved]
  - Pyrexia [Unknown]
  - Nasopharyngitis [Unknown]
  - Adverse drug reaction [Unknown]

NARRATIVE: CASE EVENT DATE: 20240530
